FAERS Safety Report 5991404-4 (Version None)
Quarter: 2008Q4

REPORT INFORMATION
  Report Type: 
  Country: None (occurrence: None)
  Receive Date: 20081202
  Receipt Date: 20080114
  Transmission Date: 20090506
  Serious: Yes (Disabling)
  Sender: FDA-Public Use
  Company Number: WAES 0801USA02856

PATIENT
  Age: 74 Year
  Sex: Female

DRUGS (6)
  1. FOSAMAX [Suspect]
     Indication: OSTEOPOROSIS
     Dosage: 70 MG/WKY/PO : 70 MG/WKY/PO
     Route: 048
     Dates: start: 19960101, end: 20060101
  2. FOSAMAX [Suspect]
     Indication: OSTEOPOROSIS
     Dosage: 70 MG/WKY/PO : 70 MG/WKY/PO
     Route: 048
     Dates: end: 20080107
  3. SYNTHROID [Concomitant]
  4. DIAZEPAM [Concomitant]
  5. OXYBUTYNIN CHLORIDE [Concomitant]
  6. SIMVASTATIN [Concomitant]

REACTIONS (2)
  - MYALGIA [None]
  - TOOTH DISORDER [None]
